FAERS Safety Report 7312975-1 (Version None)
Quarter: 2011Q1

REPORT INFORMATION
  Report Type: 
  Country: None (occurrence: None)
  Receive Date: 20110224
  Receipt Date: 20110215
  Transmission Date: 20110831
  Serious: Yes (Other)
  Sender: FDA-Public Use
  Company Number: US-BRISTOL-MYERS SQUIBB COMPANY-15552490

PATIENT
  Sex: Female

DRUGS (1)
  1. KOMBIGLYZE XR [Suspect]

REACTIONS (2)
  - DIZZINESS [None]
  - FALL [None]
